FAERS Safety Report 9274735 (Version 1)
Quarter: 2013Q2

REPORT INFORMATION
  Report Type: Spontaneous
  Country: US (occurrence: None)
  Receive Date: 20130430
  Receipt Date: 20130430
  Transmission Date: 20140414
  Serious: Yes (Other)
  Sender: FDA-Public Use
  Company Number: None

PATIENT
  Age: 61 Year
  Sex: Female
  Weight: 80.74 kg

DRUGS (1)
  1. NUCYNTA [Suspect]
     Dosage: LOT # ?09033

REACTIONS (5)
  - Gout [None]
  - Nerve compression [None]
  - Pain [None]
  - Insomnia [None]
  - Gait disturbance [None]
